FAERS Safety Report 15757203 (Version 1)
Quarter: 2018Q4

REPORT INFORMATION
  Report Type: Report from Study
  Country: US (occurrence: US)
  Receive Date: 20181224
  Receipt Date: 20181224
  Transmission Date: 20190205
  Serious: Yes (Other)
  Sender: FDA-Public Use
  Company Number: US-BAUSCH-BL-2018-035815

PATIENT
  Sex: Male
  Weight: 86.26 kg

DRUGS (2)
  1. INSULIN [Suspect]
     Active Substance: INSULIN NOS
     Indication: PRODUCT USED FOR UNKNOWN INDICATION
     Route: 065
  2. XIFAXAN [Suspect]
     Active Substance: RIFAXIMIN
     Indication: HEPATIC CIRRHOSIS
     Dosage: TREATMENT STARTED ABOUT ONE YEAR PRIOR TO INITIAL REPORT
     Route: 048
     Dates: start: 2017

REACTIONS (4)
  - Condition aggravated [Recovering/Resolving]
  - Diabetes mellitus [Recovering/Resolving]
  - Skin exfoliation [Recovering/Resolving]
  - Diarrhoea [Recovered/Resolved]
